FAERS Safety Report 21266040 (Version 2)
Quarter: 2023Q2

REPORT INFORMATION
  Report Type: Spontaneous
  Country: TW (occurrence: TW)
  Receive Date: 20220829
  Receipt Date: 20230419
  Transmission Date: 20230721
  Serious: Yes (Other)
  Sender: FDA-Public Use
  Company Number: TW-PFIZER INC-PV202200049211

PATIENT
  Age: 51 Year
  Sex: Female

DRUGS (5)
  1. TALAZOPARIB [Suspect]
     Active Substance: TALAZOPARIB
     Dosage: 4 #, QD
     Dates: start: 202006
  2. TALAZOPARIB [Suspect]
     Active Substance: TALAZOPARIB
     Dosage: 4 #, QD
     Dates: start: 202008
  3. TALAZOPARIB [Suspect]
     Active Substance: TALAZOPARIB
     Dosage: 3 #, QD
     Dates: start: 202011
  4. TALAZOPARIB [Suspect]
     Active Substance: TALAZOPARIB
     Dosage: 3 #, QD
     Dates: start: 202112
  5. TALAZOPARIB [Suspect]
     Active Substance: TALAZOPARIB
     Dosage: 3 #, QD
     Dates: start: 202208

REACTIONS (5)
  - Anaemia [Unknown]
  - Haematotoxicity [Unknown]
  - Malaise [Unknown]
  - Dyspnoea exertional [Unknown]
  - Therapeutic product effect incomplete [Unknown]

NARRATIVE: CASE EVENT DATE: 20200801
